FAERS Safety Report 24668020 (Version 2)
Quarter: 2024Q4

REPORT INFORMATION
  Report Type: Spontaneous
  Country: DE (occurrence: DE)
  Receive Date: 20241127
  Receipt Date: 20241204
  Transmission Date: 20250114
  Serious: Yes (Hospitalization, Other)
  Sender: AUROBINDO
  Company Number: DE-SANDOZ-SDZ2024DE092586

PATIENT
  Age: 68 Year

DRUGS (7)
  1. PLERIXAFOR [Suspect]
     Active Substance: PLERIXAFOR
     Indication: Plasma cell myeloma
     Dosage: UNK
     Route: 065
  2. PLERIXAFOR [Suspect]
     Active Substance: PLERIXAFOR
     Indication: Haematopoietic stem cell mobilisation
  3. BORTEZOMIB [Concomitant]
     Active Substance: BORTEZOMIB
     Indication: Plasma cell myeloma
     Route: 065
  4. DARATUMUMAB [Concomitant]
     Active Substance: DARATUMUMAB
     Indication: Plasma cell myeloma
     Route: 065
  5. DEXAMETHASONE [Concomitant]
     Active Substance: DEXAMETHASONE
     Indication: Plasma cell myeloma
     Route: 065
  6. GRANULOCYTE COLONY-STIMULATING FACTOR NOS [Concomitant]
     Active Substance: GRANULOCYTE COLONY-STIMULATING FACTOR NOS
     Indication: Plasma cell myeloma
     Route: 065
  7. THALIDOMIDE [Concomitant]
     Active Substance: THALIDOMIDE
     Indication: Plasma cell myeloma
     Route: 065

REACTIONS (3)
  - Serous retinal detachment [Recovered/Resolved]
  - Visual impairment [Recovered/Resolved]
  - Retinal haemorrhage [Recovered/Resolved]
